FAERS Safety Report 21172798 (Version 2)
Quarter: 2022Q3

REPORT INFORMATION
  Report Type: Spontaneous
  Country: US (occurrence: US)
  Receive Date: 20220804
  Receipt Date: 20220809
  Transmission Date: 20221026
  Serious: No
  Sender: FDA-Public Use
  Company Number: US-PFIZER INC-202201033406

PATIENT
  Age: 49 Year
  Sex: Female
  Weight: 79.38 kg

DRUGS (1)
  1. NEURONTIN [Suspect]
     Active Substance: GABAPENTIN
     Indication: Neuralgia
     Dosage: 100 MG

REACTIONS (2)
  - Drug ineffective [Unknown]
  - Diplopia [Unknown]
